FAERS Safety Report 6197274-6 (Version None)
Quarter: 2009Q2

REPORT INFORMATION
  Report Type: 
  Country: None (occurrence: None)
  Receive Date: 20090521
  Receipt Date: 20090511
  Transmission Date: 20091009
  Serious: Yes (Life-Threatening, Hospitalization, Other)
  Sender: FDA-Public Use
  Company Number: DE-JNJFOC-20090305678

PATIENT
  Age: 60 Year
  Sex: Female
  Weight: 69.9 kg

DRUGS (3)
  1. DOXORUBICIN HCL [Suspect]
     Indication: OVARIAN CANCER
     Route: 042
  2. ZOFRAN [Concomitant]
     Route: 065
  3. DEXAMETHASONE [Concomitant]
     Route: 065

REACTIONS (4)
  - DEVICE RELATED INFECTION [None]
  - SEPSIS [None]
  - SOFT TISSUE INFLAMMATION [None]
  - SWOLLEN TONGUE [None]
